FAERS Safety Report 12724170 (Version 1)
Quarter: 2016Q3

REPORT INFORMATION
  Report Type: Spontaneous
  Country: US (occurrence: US)
  Receive Date: 20160903
  Receipt Date: 20160903
  Transmission Date: 20161109
  Serious: Yes (Hospitalization)
  Sender: FDA-Public Use
  Company Number: None

PATIENT
  Age: 59 Year
  Sex: Female
  Weight: 81.6 kg

DRUGS (4)
  1. MERCAPTOPURINE. [Suspect]
     Active Substance: MERCAPTOPURINE
     Dates: end: 20160814
  2. CYTARABINE. [Suspect]
     Active Substance: CYTARABINE
     Dates: end: 20160811
  3. METHOTREXATE. [Suspect]
     Active Substance: METHOTREXATE
     Dates: end: 20160815
  4. CYCLOPHOSPHAMIDE. [Suspect]
     Active Substance: CYCLOPHOSPHAMIDE
     Dates: end: 20160801

REACTIONS (5)
  - Platelet count decreased [None]
  - Diarrhoea [None]
  - Febrile neutropenia [None]
  - Klebsiella bacteraemia [None]
  - Nausea [None]

NARRATIVE: CASE EVENT DATE: 20160822
